FAERS Safety Report 24338939 (Version 3)
Quarter: 2024Q4

REPORT INFORMATION
  Report Type: Spontaneous
  Country: NL (occurrence: NL)
  Receive Date: 20240919
  Receipt Date: 20241128
  Transmission Date: 20250114
  Serious: Yes (Other)
  Sender: TERSERA THERAPEUTICS
  Company Number: NL-AstraZeneca-2024A212801

PATIENT

DRUGS (2)
  1. GOSERELIN [Suspect]
     Active Substance: GOSERELIN
     Indication: Specialist consultation
     Dosage: 10.8 MILLIGRAM, UNK, FREQUENCY: Q3MO
     Route: 058
     Dates: start: 20211007, end: 20240917
  2. ZOLADEX [Suspect]
     Active Substance: GOSERELIN ACETATE
     Indication: Specialist consultation
     Dosage: UNK
     Route: 065

REACTIONS (1)
  - Dementia [Not Recovered/Not Resolved]

NARRATIVE: CASE EVENT DATE: 20240806
